FAERS Safety Report 7616712-2 (Version None)
Quarter: 2011Q3

REPORT INFORMATION
  Report Type: 
  Country: None (occurrence: None)
  Receive Date: 20110718
  Receipt Date: 20110706
  Transmission Date: 20111222
  Serious: Yes (Other)
  Sender: FDA-Public Use
  Company Number: CHPA2011JP07332

PATIENT
  Age: 82 Year
  Sex: Male

DRUGS (16)
  1. DIOVAN [Concomitant]
     Route: 048
  2. VERAPAMIL HCL [Concomitant]
  3. BIOFERMIN [Concomitant]
     Route: 048
  4. LAXOBERON [Concomitant]
  5. BEZATOL - SLOW RELEASE [Concomitant]
     Route: 048
  6. RIZE [Concomitant]
  7. MAGNESIUM SULFATE [Concomitant]
  8. CIRCANETTEN [Concomitant]
  9. DOXAZOSIN MESYLATE [Concomitant]
  10. METOPROLOL TARTRATE [Concomitant]
  11. TAMBOCOR [Concomitant]
  12. ADALAT CC [Suspect]
     Dosage: 20 MG, QD
     Route: 048
     Dates: start: 20110520
  13. LENDORMIN [Concomitant]
  14. MUCOSTA [Concomitant]
  15. NORVASC [Concomitant]
  16. VOLTAREN [Suspect]
     Dosage: UNK, UNK
     Route: 061

REACTIONS (2)
  - BLOOD PRESSURE ABNORMAL [None]
  - HYPERTENSION [None]
